FAERS Safety Report 18119560 (Version 3)
Quarter: 2020Q3

REPORT INFORMATION
  Report Type: Spontaneous
  Country: US (occurrence: US)
  Receive Date: 20200806
  Receipt Date: 20200811
  Transmission Date: 20201103
  Serious: Yes (Other)
  Sender: FDA-Public Use
  Company Number: US-BIOGEN-2020BI00905336

PATIENT
  Age: 58 Year
  Sex: Female

DRUGS (2)
  1. TECFIDERA [Suspect]
     Active Substance: DIMETHYL FUMARATE
     Indication: MULTIPLE SCLEROSIS
     Route: 065
     Dates: start: 20130708
  2. TECFIDERA [Suspect]
     Active Substance: DIMETHYL FUMARATE
     Dosage: MAINTENANCE DOSE
     Route: 065

REACTIONS (34)
  - Fear [Unknown]
  - Mental disorder [Not Recovered/Not Resolved]
  - Hyperhidrosis [Unknown]
  - Central nervous system lesion [Unknown]
  - Product dose omission issue [Recovered/Resolved]
  - Aphasia [Unknown]
  - Motor dysfunction [Unknown]
  - Suicidal ideation [Unknown]
  - Peripheral swelling [Not Recovered/Not Resolved]
  - Pain in extremity [Recovered/Resolved]
  - Screaming [Unknown]
  - Logorrhoea [Unknown]
  - Anger [Recovered/Resolved]
  - Hemianaesthesia [Not Recovered/Not Resolved]
  - Musculoskeletal disorder [Unknown]
  - Feeding disorder [Unknown]
  - Peroneal nerve palsy [Unknown]
  - Multiple sclerosis [Recovered/Resolved]
  - Impaired self-care [Recovered/Resolved]
  - General symptom [Unknown]
  - Intentional underdose [Recovered/Resolved]
  - Memory impairment [Unknown]
  - Band sensation [Recovered/Resolved]
  - Emotional distress [Not Recovered/Not Resolved]
  - Gait inability [Not Recovered/Not Resolved]
  - Paraesthesia [Unknown]
  - Nail discolouration [Not Recovered/Not Resolved]
  - Gait disturbance [Recovered/Resolved]
  - Feeling abnormal [Unknown]
  - Diabetes mellitus [Unknown]
  - Crying [Unknown]
  - Bipolar disorder [Not Recovered/Not Resolved]
  - Hemiparesis [Not Recovered/Not Resolved]
  - Flushing [Not Recovered/Not Resolved]

NARRATIVE: CASE EVENT DATE: 202006
